FAERS Safety Report 5598745-3 (Version None)
Quarter: 2008Q1

REPORT INFORMATION
  Report Type: 
  Country: None (occurrence: None)
  Receive Date: 20080117
  Receipt Date: 20080107
  Transmission Date: 20080703
  Serious: Yes (Hospitalization, Disabling)
  Sender: FDA-Public Use
  Company Number: OSCN-NO-0801S-0019

PATIENT
  Sex: Female

DRUGS (2)
  1. OMNISCAN [Suspect]
     Indication: NEOPLASM
     Dosage: 20 ML, SINGLE DOSE, I.V.; 20 ML, SINGLE DOSE, I.V.
     Route: 042
     Dates: start: 20061101, end: 20061101
  2. OMNISCAN [Suspect]
     Indication: NEOPLASM
     Dosage: 20 ML, SINGLE DOSE, I.V.; 20 ML, SINGLE DOSE, I.V.
     Route: 042
     Dates: start: 20070201, end: 20070201

REACTIONS (2)
  - DEEP VEIN THROMBOSIS [None]
  - PERIPHERAL ARTERY ANEURYSM [None]
